FAERS Safety Report 17291578 (Version 2)
Quarter: 2021Q4

REPORT INFORMATION
  Report Type: Spontaneous
  Country: JP (occurrence: JP)
  Receive Date: 20200121
  Receipt Date: 20211224
  Transmission Date: 20220303
  Serious: Yes (Hospitalization)
  Sender: FDA-Public Use
  Company Number: JP-BAYER-2019-232830

PATIENT
  Age: 42 Year
  Sex: Female
  Weight: 50.9 kg

DRUGS (7)
  1. YAZ [Suspect]
     Active Substance: DROSPIRENONE\ETHINYL ESTRADIOL
     Indication: Dysmenorrhoea
     Dosage: UNK
     Route: 048
     Dates: start: 201011, end: 201911
  2. YAZ [Suspect]
     Active Substance: DROSPIRENONE\ETHINYL ESTRADIOL
     Indication: Endometriosis
  3. YAZ [Suspect]
     Active Substance: DROSPIRENONE\ETHINYL ESTRADIOL
     Indication: Premenstrual syndrome
  4. LEXAPRO [Concomitant]
     Active Substance: ESCITALOPRAM OXALATE
     Indication: Depression
     Dosage: DAILY DOSE 10 MG
     Route: 048
     Dates: start: 2018
  5. LEXAPRO [Concomitant]
     Active Substance: ESCITALOPRAM OXALATE
     Indication: Adjustment disorder
  6. ETHYL LOFLAZEPATE [Concomitant]
     Active Substance: ETHYL LOFLAZEPATE
     Indication: Depression
     Dosage: DAILY DOSE 0.5 MG
     Route: 048
     Dates: start: 2018
  7. ETHYL LOFLAZEPATE [Concomitant]
     Active Substance: ETHYL LOFLAZEPATE
     Indication: Adjustment disorder

REACTIONS (6)
  - Cerebral venous sinus thrombosis [Recovered/Resolved]
  - Headache [Recovered/Resolved]
  - Nausea [Recovered/Resolved]
  - Coagulopathy [Recovered/Resolved]
  - Muscular weakness [Recovered/Resolved]
  - Suspected counterfeit product [None]

NARRATIVE: CASE EVENT DATE: 20191209
